FAERS Safety Report 12998798 (Version 1)
Quarter: 2016Q4

REPORT INFORMATION
  Report Type: Other
  Country: GB (occurrence: GB)
  Receive Date: 20161205
  Receipt Date: 20161205
  Transmission Date: 20170207
  Serious: Yes (Other)
  Sender: FDA-Public Use
  Company Number: GB-PERRIGO-16GB022345

PATIENT

DRUGS (2)
  1. GALPHARM HEALTHCARE IBUPROFEN [Concomitant]
     Indication: OROPHARYNGEAL PAIN
     Route: 065
  2. PARACETAMOL [Suspect]
     Active Substance: ACETAMINOPHEN
     Indication: PYREXIA
     Route: 048
     Dates: start: 20161112, end: 20161120

REACTIONS (5)
  - Oropharyngeal pain [Not Recovered/Not Resolved]
  - Oral candidiasis [Not Recovered/Not Resolved]
  - Crying [Unknown]
  - Tongue blistering [Unknown]
  - Throat irritation [Unknown]

NARRATIVE: CASE EVENT DATE: 20161112
